FAERS Safety Report 15518699 (Version 4)
Quarter: 2021Q3

REPORT INFORMATION
  Report Type: Spontaneous
  Country: US (occurrence: US)
  Receive Date: 20181017
  Receipt Date: 20210706
  Transmission Date: 20211014
  Serious: No
  Sender: FDA-Public Use
  Company Number: US-SA-2018SA287458

PATIENT
  Age: 34 Year
  Sex: Female

DRUGS (1)
  1. DUPIXENT [Suspect]
     Active Substance: DUPILUMAB
     Indication: NEURODERMATITIS
     Dosage: 300 MG, QOW
     Route: 058
     Dates: start: 20180116

REACTIONS (4)
  - Lacrimation increased [Unknown]
  - Exposure during pregnancy [Unknown]
  - Sneezing [Unknown]
  - Eye irritation [Unknown]

NARRATIVE: CASE EVENT DATE: 201810
